FAERS Safety Report 11199622 (Version 1)
Quarter: 2015Q2

REPORT INFORMATION
  Report Type: Spontaneous
  Country: BR (occurrence: BR)
  Receive Date: 20150618
  Receipt Date: 20150618
  Transmission Date: 20150821
  Serious: Yes (Other)
  Sender: FDA-Public Use
  Company Number: BR-PFIZER INC-2015201223

PATIENT
  Age: 45 Year
  Sex: Female
  Weight: 60 kg

DRUGS (2)
  1. LYRICA [Suspect]
     Active Substance: PREGABALIN
     Indication: SPINAL PAIN
     Dosage: 75 MG, 2X/DAY
     Route: 048
     Dates: start: 2014
  2. GLUCOSAMINE AND CHONDROITIN [Concomitant]
     Indication: ARTHRALGIA
     Dosage: 2 TABLETS, 3X/DAY
     Dates: start: 2013

REACTIONS (1)
  - Hyperthyroidism [Not Recovered/Not Resolved]
